FAERS Safety Report 8247823-9 (Version None)
Quarter: 2012Q1

REPORT INFORMATION
  Report Type: 
  Country: None (occurrence: None)
  Receive Date: 20120330
  Receipt Date: 20120326
  Transmission Date: 20120608
  Serious: Yes (Other)
  Sender: FDA-Public Use
  Company Number: US-PFIZER INC-2012007663

PATIENT
  Sex: Female
  Weight: 112 kg

DRUGS (8)
  1. TRAZODONE [Concomitant]
     Dosage: 200 MG, H.S.
     Dates: start: 20090611
  2. NEURONTIN [Concomitant]
     Dosage: 300 MG, 2X/DAY
     Dates: start: 20090611
  3. PRISTIQ [Suspect]
     Indication: ANXIETY
     Dosage: 50 MG, DAILY
     Route: 048
     Dates: start: 20090611, end: 20120101
  4. SUDAFED 12 HOUR [Concomitant]
     Indication: SINUSITIS
     Dosage: UNK
  5. VALIUM [Concomitant]
     Dosage: 10 MG, 2X/DAY
     Route: 048
     Dates: start: 20090611
  6. ULTRAM [Concomitant]
     Dosage: 2 DF, 1X/DAY
     Route: 048
  7. NEXIUM [Concomitant]
     Dosage: 40 MG, DAILY
  8. PRISTIQ [Suspect]
     Indication: DEPRESSION
     Dosage: 40 MG, DAILY
     Dates: end: 20111201

REACTIONS (7)
  - PAIN [None]
  - HEADACHE [None]
  - FATIGUE [None]
  - FEELING ABNORMAL [None]
  - ASTHENIA [None]
  - WEIGHT DECREASED [None]
  - FEELING COLD [None]
